FAERS Safety Report 20878101 (Version 1)
Quarter: 2022Q2

REPORT INFORMATION
  Report Type: Spontaneous
  Country: US (occurrence: US)
  Receive Date: 20220526
  Receipt Date: 20220526
  Transmission Date: 20220721
  Serious: Yes (Other)
  Sender: FDA-Public Use
  Company Number: US-BIOGEN-2022BI01091531

PATIENT
  Sex: Female

DRUGS (1)
  1. VUMERITY [Suspect]
     Active Substance: DIROXIMEL FUMARATE
     Indication: Multiple sclerosis
     Dosage: MAINTENANCE DOSE
     Route: 065
     Dates: start: 20201215, end: 20211215

REACTIONS (3)
  - Lymphocyte count decreased [Recovered/Resolved]
  - White blood cell count decreased [Recovered/Resolved]
  - Immunodeficiency [Unknown]
